FAERS Safety Report 17813109 (Version 2)
Quarter: 2020Q2

REPORT INFORMATION
  Report Type: Report from Study
  Country: US (occurrence: US)
  Receive Date: 20200521
  Receipt Date: 20200615
  Transmission Date: 20200714
  Serious: Yes (Hospitalization)
  Sender: FDA-Public Use
  Company Number: US-ACTELION-A-NJ2020-203254

PATIENT
  Age: 53 Year
  Sex: Female

DRUGS (2)
  1. REMODULIN [Concomitant]
     Active Substance: TREPROSTINIL
     Dosage: 29 NG/KG, PER MIN
     Route: 042
  2. OPSUMIT [Suspect]
     Active Substance: MACITENTAN
     Indication: PULMONARY ARTERIAL HYPERTENSION
     Dosage: 10 MG, QD
     Route: 048
     Dates: start: 20200223, end: 20200604

REACTIONS (9)
  - Fluid retention [Unknown]
  - Swelling [Not Recovered/Not Resolved]
  - Poor quality sleep [Unknown]
  - Product dose omission [Recovered/Resolved]
  - Joint swelling [Not Recovered/Not Resolved]
  - Weight increased [Unknown]
  - Respiratory distress [Not Recovered/Not Resolved]
  - Fatigue [Unknown]
  - Oedema [Not Recovered/Not Resolved]

NARRATIVE: CASE EVENT DATE: 20200223
